FAERS Safety Report 20326018 (Version 1)
Quarter: 2022Q1

REPORT INFORMATION
  Report Type: Report from Study
  Country: US (occurrence: US)
  Receive Date: 20220112
  Receipt Date: 20220112
  Transmission Date: 20220424
  Serious: Yes (Hospitalization)
  Sender: FDA-Public Use
  Company Number: US-ABBVIE-22K-163-4230917-00

PATIENT
  Sex: Female

DRUGS (1)
  1. VENCLEXTA [Suspect]
     Active Substance: VENETOCLAX
     Indication: Diffuse large B-cell lymphoma
     Route: 048
     Dates: start: 20210824, end: 20211010

REACTIONS (2)
  - COVID-19 [Recovering/Resolving]
  - Full blood count abnormal [Recovering/Resolving]

NARRATIVE: CASE EVENT DATE: 20210101
